FAERS Safety Report 5831489-9 (Version None)
Quarter: 2008Q3

REPORT INFORMATION
  Report Type: 
  Country: None (occurrence: None)
  Receive Date: 20080730
  Receipt Date: 20080722
  Transmission Date: 20090109
  Serious: Yes (Hospitalization)
  Sender: FDA-Public Use
  Company Number: 163-21880-08060931

PATIENT
  Age: 70 Year
  Sex: Female

DRUGS (1)
  1. REVLIMID [Suspect]
     Indication: MULTIPLE MYELOMA
     Dosage: 2.5 MG, 1 IN 2 D, ORAL; 2.5 MG, 1 IN 2 D, ORAL
     Route: 048
     Dates: start: 20080218

REACTIONS (3)
  - FULL BLOOD COUNT DECREASED [None]
  - INTESTINAL OBSTRUCTION [None]
  - LABORATORY TEST ABNORMAL [None]
